FAERS Safety Report 8784248 (Version 2)
Quarter: 2012Q4

REPORT INFORMATION
  Report Type: 
  Country: DE (occurrence: CH)
  Receive Date: 20120913
  Receipt Date: 20121205
  Transmission Date: 20130627
  Serious: Yes (Other)
  Sender: FDA-Public Use
  Company Number: CH-FRI-1000038512

PATIENT
  Age: 70 Year
  Sex: Female
  Weight: 62 kg

DRUGS (5)
  1. ROFLUMILAST [Suspect]
     Indication: CHRONIC OBSTRUCTIVE PULMONARY DISEASE
     Dosage: 500 mcg
     Dates: start: 20120717, end: 20120718
  2. SERETIDE [Concomitant]
     Dosage: 6 DF
  3. SPIRIVA [Concomitant]
  4. CALCIMAGON [Concomitant]
  5. MAGNESIUM [Concomitant]

REACTIONS (3)
  - Ecchymosis [Unknown]
  - Rash [Recovered/Resolved]
  - Pruritus generalised [Recovered/Resolved]
